FAERS Safety Report 8876350 (Version 1)
Quarter: 2012Q4

REPORT INFORMATION
  Report Type: 
  Country: CA (occurrence: CA)
  Receive Date: 20121031
  Receipt Date: 20121031
  Transmission Date: 20130627
  Serious: Yes (Death, Other)
  Sender: FDA-Public Use
  Company Number: PHHY2008CA21810

PATIENT
  Age: 80 Year
  Sex: Male

DRUGS (1)
  1. SANDOSTATIN LAR [Suspect]
     Indication: HEPATIC NEOPLASM MALIGNANT
     Dosage: 30 mg, UNK
     Route: 030
     Dates: start: 20080703, end: 20081023

REACTIONS (12)
  - General physical health deterioration [Fatal]
  - Asthenia [Unknown]
  - Vomiting [Unknown]
  - Memory impairment [Unknown]
  - Hypersomnia [Unknown]
  - Confusional state [Unknown]
  - Weight decreased [Unknown]
  - Sensory loss [Unknown]
  - Gait disturbance [Unknown]
  - Pruritus generalised [Unknown]
  - Diarrhoea [Not Recovered/Not Resolved]
  - Drug ineffective [Unknown]
